FAERS Safety Report 17047694 (Version 1)
Quarter: 2019Q4

REPORT INFORMATION
  Report Type: Spontaneous
  Country: US (occurrence: US)
  Receive Date: 20191115
  Receipt Date: 20191115
  Transmission Date: 20200122
  Serious: Yes (Hospitalization)
  Sender: FDA-Public Use
  Company Number: None

PATIENT
  Age: 19 Year
  Sex: Male
  Weight: 56.25 kg

DRUGS (2)
  1. COLCRYS [Suspect]
     Active Substance: COLCHICINE
     Indication: INFLAMMATION
  2. COLCRYS [Suspect]
     Active Substance: COLCHICINE
     Indication: MYOCARDITIS

REACTIONS (2)
  - Manufacturing materials issue [None]
  - Reaction to azo-dyes [None]

NARRATIVE: CASE EVENT DATE: 20191111
